FAERS Safety Report 19059043 (Version 3)
Quarter: 2021Q2

REPORT INFORMATION
  Report Type: Spontaneous
  Country: US (occurrence: US)
  Receive Date: 20210325
  Receipt Date: 20210521
  Transmission Date: 20210717
  Serious: No
  Sender: FDA-Public Use
  Company Number: US-ASTRAZENECA-2021A153806

PATIENT
  Sex: Female
  Weight: 80.7 kg

DRUGS (3)
  1. BREZTRI [Suspect]
     Active Substance: BUDESONIDE\FORMOTEROL\GLYCOPYRRONIUM
     Indication: CHRONIC OBSTRUCTIVE PULMONARY DISEASE
     Dosage: 160MCG/7.2MCG/4.8MCG TWO PUFFS TWICE DAILY
     Route: 055
     Dates: start: 20210303
  2. IMFINZI [Suspect]
     Active Substance: DURVALUMAB
     Indication: LUNG NEOPLASM MALIGNANT
     Dosage: UNKNOWN
     Route: 042
     Dates: start: 2019, end: 2020
  3. PFIZER BIONTECH VACCINE [Concomitant]

REACTIONS (7)
  - Rash [Recovered/Resolved]
  - Pyrexia [Unknown]
  - Haemorrhage [Recovered/Resolved]
  - Device issue [Unknown]
  - Device use issue [Unknown]
  - Incorrect dose administered by device [Unknown]
  - Pain in extremity [Unknown]
